FAERS Safety Report 24224837 (Version 2)
Quarter: 2024Q3

REPORT INFORMATION
  Report Type: Report from Study
  Country: CR (occurrence: CR)
  Receive Date: 20240819
  Receipt Date: 20240904
  Transmission Date: 20241017
  Serious: Yes (Hospitalization)
  Sender: BIOGEN
  Company Number: CR-BIOGEN-2024BI01278419

PATIENT
  Age: 47 Year
  Sex: Female
  Weight: 70 kg

DRUGS (7)
  1. AVONEX [Suspect]
     Active Substance: INTERFERON BETA-1A
     Indication: Relapsing multiple sclerosis
     Route: 050
     Dates: start: 20210501
  2. AVONEX [Suspect]
     Active Substance: INTERFERON BETA-1A
  3. AVONEX [Suspect]
     Active Substance: INTERFERON BETA-1A
  4. AVONEX [Suspect]
     Active Substance: INTERFERON BETA-1A
  5. VITAMIN E [Concomitant]
     Active Substance: .ALPHA.-TOCOPHEROL
     Indication: Decreased immune responsiveness
     Route: 050
     Dates: start: 202105
  6. VITAMIN D [Concomitant]
     Active Substance: VITAMIN D NOS
     Indication: Decreased immune responsiveness
     Route: 050
     Dates: start: 202105
  7. OMEGA 3 [Concomitant]
     Active Substance: CAPSAICIN
     Indication: Decreased immune responsiveness
     Route: 050
     Dates: start: 202105

REACTIONS (2)
  - Fatigue [Recovered/Resolved]
  - Pain [Unknown]

NARRATIVE: CASE EVENT DATE: 20240808
